FAERS Safety Report 10649094 (Version 3)
Quarter: 2015Q1

REPORT INFORMATION
  Report Type: Spontaneous
  Country: US (occurrence: US)
  Receive Date: 20141212
  Receipt Date: 20150129
  Transmission Date: 20150720
  Serious: No
  Sender: FDA-Public Use
  Company Number: US-PFIZER INC-2014340841

PATIENT
  Age: 8 Year
  Sex: Female

DRUGS (2)
  1. QUILLIVANT XR [Suspect]
     Active Substance: METHYLPHENIDATE HYDROCHLORIDE
     Indication: ATTENTION DEFICIT/HYPERACTIVITY DISORDER
     Dosage: 600, DAILY
     Route: 048
  2. ETHOSUXIMIDE. [Concomitant]
     Active Substance: ETHOSUXIMIDE
     Indication: EPILEPSY
     Dosage: UNK
     Dates: start: 2011

REACTIONS (2)
  - Retching [Not Recovered/Not Resolved]
  - Product taste abnormal [Not Recovered/Not Resolved]
